FAERS Safety Report 12924759 (Version 2)
Quarter: 2016Q4

REPORT INFORMATION
  Report Type: Spontaneous
  Country: BR (occurrence: BR)
  Receive Date: 20161109
  Receipt Date: 20161115
  Transmission Date: 20170207
  Serious: Yes (Death, Other)
  Sender: FDA-Public Use
  Company Number: BR-TORRENT-00003669

PATIENT
  Age: 77 Year
  Sex: Female
  Weight: 69 kg

DRUGS (12)
  1. MOTILIUM [Concomitant]
     Active Substance: DOMPERIDONE
     Dosage: MOTILIUM 10 MG BEFORE THE BREAKFAST, LUNCH AND DINNER/ORAL
     Route: 048
  2. ADDERA D3 [Concomitant]
     Active Substance: CHOLECALCIFEROL
     Indication: PRODUCT USED FOR UNKNOWN INDICATION
     Dosage: ADDERA D3 (UNKNOWN PRESENTATION) AT 1 TABLET EVERY TUESDAY
     Route: 048
  3. PERIDAL [Concomitant]
     Indication: PRODUCT USED FOR UNKNOWN INDICATION
     Dosage: PERIDAL (PRESENTATION NOT INFORMED) AT UNKNOWN POSOLOGY.
  4. EKSON [Concomitant]
     Indication: DEMENTIA ALZHEIMER^S TYPE
     Dosage: EKSON 200 MG THREE QUARTER OF TABLET AT 08:00 A.M. AND 04:00 P.M./ ORAL
     Route: 048
  5. VYTORIN [Concomitant]
     Active Substance: EZETIMIBE\SIMVASTATIN
     Indication: BLOOD CHOLESTEROL
     Dosage: VYTORIN (PRESENTATION NOT INFORMED) AT 1 TABLET AFTER BREAKFAST.
     Route: 048
  6. LIPLESS [Concomitant]
     Active Substance: CIPROFIBRATE
     Indication: BLOOD CHOLESTEROL
     Dosage: LIPLESS (PRESENTATION NOT INFORMED) AT 1 TABLET DAILY/ ORAL
     Route: 048
  7. ARISTAB [Concomitant]
     Indication: PRODUCT USED FOR UNKNOWN INDICATION
     Dosage: ARISTAB (UNKNOWN PRESENTATION) AT HALF TABLET AT 10:00 P.M.
     Route: 048
  8. EPZ [Suspect]
     Active Substance: DONEPEZIL HYDROCHLORIDE
     Indication: DEMENTIA ALZHEIMER^S TYPE
     Dosage: EPZ 10 MG ONCE DAILY/ORAL AT 08:30 P.M.
     Route: 048
     Dates: start: 2013, end: 20161121
  9. LEXAPRO [Concomitant]
     Active Substance: ESCITALOPRAM OXALATE
     Indication: MOOD ALTERED
     Dosage: LEXAPRO 10 MG ONCE DAILY/ORAL.
     Route: 048
  10. SOMALGIN CARDIO [Concomitant]
     Active Substance: ASPIRIN\DIHYDROXYALUMINUM AMINOACETATE ANHYDROUS\MAGNESIUM CARBONATE
     Indication: BLOOD DISORDER
     Dosage: SOMALGIN CARDIO 100 MG AT 1 TABLET DAILY TO THIN THE BLOOD.
     Route: 048
  11. CALDE K2 [Concomitant]
     Indication: CALCIUM DEFICIENCY
     Dosage: CALDE K2 (UNKNOWN PRESENTATION) AT 1 TABLET AFTER LUNCH AND 1 TABLET AFTER DINNER.
     Route: 048
  12. FRONTAL [Concomitant]
     Active Substance: ALPRAZOLAM
     Indication: INSOMNIA
     Dosage: FRONTAL 1 MG (ALPRAZOLAM) AT 1 TABLET AT 10:30 P.M.
     Route: 048

REACTIONS (2)
  - Cerebral disorder [Fatal]
  - Cardiac arrest [Fatal]

NARRATIVE: CASE EVENT DATE: 201610
